FAERS Safety Report 7728210-6 (Version None)
Quarter: 2011Q3

REPORT INFORMATION
  Report Type: 
  Country: None (occurrence: None)
  Receive Date: 20110905
  Receipt Date: 20110823
  Transmission Date: 20111222
  Serious: Yes (Hospitalization)
  Sender: FDA-Public Use
  Company Number: PHHY2011JP76086

PATIENT
  Sex: Female

DRUGS (7)
  1. TASIGNA [Suspect]
     Indication: CHRONIC MYELOID LEUKAEMIA
     Dosage: 800 MG, QD
     Route: 048
     Dates: start: 20110319, end: 20110320
  2. LOXONIN [Concomitant]
     Indication: RHEUMATOID ARTHRITIS
     Dosage: 180 MG, QD
     Route: 048
     Dates: start: 20110319
  3. TASIGNA [Suspect]
     Dosage: 400 MG, QD
     Route: 048
     Dates: start: 20110325
  4. TASIGNA [Suspect]
     Dosage: 200 MG, QD
     Route: 048
     Dates: start: 20110323, end: 20110324
  5. PREDNISOLONE [Concomitant]
     Indication: RHEUMATOID ARTHRITIS
     Dosage: 5 MG, QD
     Route: 048
     Dates: start: 20110502
  6. LANSOPRAZOLE [Concomitant]
     Indication: RHEUMATOID ARTHRITIS
     Dosage: 30 MG, QD
     Route: 048
     Dates: start: 20110319
  7. ALENDRONATE SODIUM [Concomitant]
     Indication: RHEUMATOID ARTHRITIS
     Dosage: 35 MG, QD
     Route: 048
     Dates: start: 20110319

REACTIONS (1)
  - UTERINE CANCER [None]
